FAERS Safety Report 24091558 (Version 1)
Quarter: 2024Q3

REPORT INFORMATION
  Report Type: Spontaneous
  Country: CN (occurrence: CN)
  Receive Date: 20240715
  Receipt Date: 20240715
  Transmission Date: 20241017
  Serious: Yes (Life-Threatening, Hospitalization)
  Sender: EISAI
  Company Number: CN-Eisai-EC-2024-169262

PATIENT
  Age: 41 Year
  Sex: Female
  Weight: 49 kg

DRUGS (2)
  1. ERIBULIN [Suspect]
     Active Substance: ERIBULIN
     Indication: Cervix carcinoma
     Route: 042
     Dates: start: 20240608
  2. PEMETREXED [Suspect]
     Active Substance: PEMETREXED
     Indication: Cervix carcinoma
     Route: 042
     Dates: start: 20240613

REACTIONS (4)
  - Myelosuppression [Not Recovered/Not Resolved]
  - Septic shock [Not Recovered/Not Resolved]
  - Sepsis [Not Recovered/Not Resolved]
  - Haematuria [Not Recovered/Not Resolved]

NARRATIVE: CASE EVENT DATE: 20240616
